FAERS Safety Report 7151783-1 (Version None)
Quarter: 2010Q4

REPORT INFORMATION
  Report Type: 
  Country: None (occurrence: None)
  Receive Date: 20101126
  Receipt Date: 20101105
  Transmission Date: 20110411
  Serious: No
  Sender: FDA-Public Use
  Company Number: 2010-00983

PATIENT
  Age: 24 Year
  Sex: Female
  Weight: 68.0396 kg

DRUGS (4)
  1. ZICAM EXTREME CONGESTION RELIEF [Suspect]
     Dosage: QD X 2 DAYS
     Dates: start: 20101103, end: 20101104
  2. ORTHO CYCLEN-28 [Concomitant]
  3. VITAMIN AND MINERAL PRENATAL SUPPLEMENT W/ FOLIC ACID CAP [Concomitant]
  4. TYLENOL COLD [Concomitant]

REACTIONS (2)
  - AGEUSIA [None]
  - ANOSMIA [None]
